FAERS Safety Report 9103164 (Version 1)
Quarter: 2013Q1

REPORT INFORMATION
  Report Type: Spontaneous
  Country: IT (occurrence: None)
  Receive Date: 20130125
  Receipt Date: 20130125
  Transmission Date: 20140127
  Serious: Yes (Other)
  Sender: FDA-Public Use
  Company Number: 1563776

PATIENT
  Age: 85 Year
  Sex: Female
  Weight: 62 kg

DRUGS (1)
  1. CARBOPLATIN [Suspect]
     Indication: OVARIAN CANCER
     Dates: start: 20130110, end: 20130110

REACTIONS (6)
  - Restlessness [None]
  - Malaise [None]
  - Vomiting [None]
  - Erythema [None]
  - Pruritus [None]
  - Hypersensitivity [None]
